FAERS Safety Report 24071578 (Version 1)
Quarter: 2024Q3

REPORT INFORMATION
  Report Type: Report from Study
  Country: JP (occurrence: JP)
  Receive Date: 20240710
  Receipt Date: 20240710
  Transmission Date: 20241016
  Serious: No
  Sender: ROCHE
  Company Number: JP-CHUGAI-2022034621

PATIENT
  Age: 19 Year
  Sex: Male
  Weight: 34.7 kg

DRUGS (1)
  1. EVRYSDI [Suspect]
     Active Substance: RISDIPLAM
     Indication: Spinal muscular atrophy
     Route: 048
     Dates: start: 20220217

REACTIONS (1)
  - Faeces soft [Recovered/Resolved]

NARRATIVE: CASE EVENT DATE: 20220217
